FAERS Safety Report 8281943-8 (Version None)
Quarter: 2012Q2

REPORT INFORMATION
  Report Type: 
  Country: None (occurrence: None)
  Receive Date: 20120413
  Receipt Date: 20120405
  Transmission Date: 20120825
  Serious: Yes (Life-Threatening, Hospitalization, Other)
  Sender: FDA-Public Use
  Company Number: US-JNJFOC-20120305497

PATIENT
  Sex: Female

DRUGS (7)
  1. CYMBALTA [Concomitant]
     Indication: FIBROMYALGIA
     Route: 065
  2. BENADRYL [Suspect]
     Indication: PRURITUS
     Dosage: 25 AT BED TIME
     Route: 065
  3. NUCYNTA ER [Suspect]
     Indication: PAIN
     Dosage: TWICE A DAY
     Route: 048
  4. NUCYNTA ER [Suspect]
     Dosage: TWICE A DAY
     Route: 048
     Dates: start: 20120124
  5. REMICADE [Concomitant]
     Indication: RHEUMATOID ARTHRITIS
     Route: 065
     Dates: start: 20120227
  6. PREDNISONE [Concomitant]
     Indication: MUSCULOSKELETAL PAIN
     Route: 065
  7. METHOTREXATE [Concomitant]
     Indication: RHEUMATOID ARTHRITIS
     Dosage: 1 IN ONE WEEK
     Route: 065

REACTIONS (3)
  - SUDDEN ONSET OF SLEEP [None]
  - ACCIDENT [None]
  - HYPERSOMNIA [None]
